FAERS Safety Report 16006283 (Version 2)
Quarter: 2019Q3

REPORT INFORMATION
  Report Type: Spontaneous
  Country: US (occurrence: US)
  Receive Date: 20190226
  Receipt Date: 20190903
  Transmission Date: 20191004
  Serious: Yes (Other)
  Sender: FDA-Public Use
  Company Number: US-MYLANLABS-2019M1015630

PATIENT
  Age: 37 Year
  Sex: Female
  Weight: 59 kg

DRUGS (3)
  1. CLONAZEPAM. [Suspect]
     Active Substance: CLONAZEPAM
     Indication: ANXIETY
     Dosage: UNK AS NEEDED
     Route: 048
     Dates: start: 201701
  2. TRIAMTERENE AND HYDROCHLOROTHIAZIDE CAPSULES, USP [Suspect]
     Active Substance: HYDROCHLOROTHIAZIDE\TRIAMTERENE
     Indication: MENIERE^S DISEASE
     Dosage: UNK AS NEEDED
     Route: 048
     Dates: start: 201806
  3. DIAZEPAM TABLETS USP [Suspect]
     Active Substance: DIAZEPAM
     Indication: MENIERE^S DISEASE
     Dosage: 5 MILLIGRAM, AS NEEDED
     Route: 048
     Dates: start: 201806

REACTIONS (6)
  - Weight decreased [Not Recovered/Not Resolved]
  - Product use in unapproved indication [Unknown]
  - Inappropriate schedule of product administration [Unknown]
  - Vertigo [Not Recovered/Not Resolved]
  - Vomiting [Not Recovered/Not Resolved]
  - Coeliac disease [Not Recovered/Not Resolved]

NARRATIVE: CASE EVENT DATE: 201901
